FAERS Safety Report 10402724 (Version 2)
Quarter: 2017Q1

REPORT INFORMATION
  Report Type: Spontaneous
  Country: US (occurrence: US)
  Receive Date: 20140822
  Receipt Date: 20170120
  Transmission Date: 20170428
  Serious: No
  Sender: FDA-Public Use
  Company Number: US-ASTRAZENECA-2013SE70301

PATIENT
  Age: 52 Year
  Sex: Female
  Weight: 90.7 kg

DRUGS (2)
  1. PREDNISONE. [Concomitant]
     Active Substance: PREDNISONE
  2. SYMBICORT [Suspect]
     Active Substance: BUDESONIDE\FORMOTEROL FUMARATE DIHYDRATE
     Indication: ASTHMA
     Dosage: 160 4.5 MCG 2 PUFFS BID
     Route: 055

REACTIONS (3)
  - Pneumonia [Unknown]
  - Gait disturbance [Unknown]
  - Intentional product misuse [Unknown]
